FAERS Safety Report 8942612 (Version 1)
Quarter: 2012Q4

REPORT INFORMATION
  Report Type: 
  Country: ZA (occurrence: ZA)
  Receive Date: 20121204
  Receipt Date: 20121204
  Transmission Date: 20130627
  Serious: Yes (Other)
  Sender: FDA-Public Use
  Company Number: ZA-JNJFOC-20121114996

PATIENT
  Age: 56 Year
  Sex: Female

DRUGS (8)
  1. XARELTO [Suspect]
     Indication: ORTHOPAEDIC PROCEDURE
     Route: 048
     Dates: start: 20121026, end: 20121107
  2. XARELTO [Suspect]
     Indication: THROMBOSIS PROPHYLAXIS
     Route: 048
     Dates: start: 20121026, end: 20121107
  3. ELTROXIN [Concomitant]
     Indication: HYPOTHYROIDISM
     Route: 065
  4. CLEXANE [Concomitant]
     Route: 065
  5. CELEBREX [Concomitant]
     Route: 065
  6. GALVUS [Concomitant]
     Route: 065
  7. METFORMIN [Concomitant]
     Indication: TYPE 2 DIABETES MELLITUS
     Route: 065
  8. TAMOXIFEN [Concomitant]
     Route: 065

REACTIONS (2)
  - Deep vein thrombosis postoperative [Unknown]
  - Drug ineffective [Unknown]
